FAERS Safety Report 6061023-2 (Version None)
Quarter: 2009Q1

REPORT INFORMATION
  Report Type: 
  Country: None (occurrence: None)
  Receive Date: 20090129
  Receipt Date: 20090129
  Transmission Date: 20090719
  Serious: No
  Sender: FDA-Public Use
  Company Number: None

PATIENT
  Age: 32 Year
  Sex: Male
  Weight: 74.8435 kg

DRUGS (1)
  1. ZICAM COLD REMEDY NASAL SPRAY MATRIXX CORP [Suspect]
     Dosage: ONE SPRAY IN EACH NOSTRIL ONCE NASAL
     Route: 045
     Dates: start: 20090116, end: 20090116

REACTIONS (4)
  - AGEUSIA [None]
  - ANOSMIA [None]
  - PAROSMIA [None]
  - RHINALGIA [None]
